FAERS Safety Report 16154982 (Version 2)
Quarter: 2019Q2

REPORT INFORMATION
  Report Type: Spontaneous
  Country: CH (occurrence: CH)
  Receive Date: 20190403
  Receipt Date: 20190415
  Transmission Date: 20190711
  Serious: Yes (Hospitalization)
  Sender: FDA-Public Use
  Company Number: CH-ANIPHARMA-2019-CH-000013

PATIENT
  Age: 60 Year
  Sex: Female

DRUGS (33)
  1. ATACAND [Suspect]
     Active Substance: CANDESARTAN CILEXETIL
     Indication: PRODUCT USED FOR UNKNOWN INDICATION
     Dosage: 16 MG UNK
     Route: 048
     Dates: start: 201901, end: 201902
  2. VALVERDE [Concomitant]
     Active Substance: HERBALS
     Dosage: UNK
     Route: 065
     Dates: start: 201812, end: 20190120
  3. XYZAL [Concomitant]
     Active Substance: LEVOCETIRIZINE DIHYDROCHLORIDE
     Dosage: AS NECESSARY
     Route: 065
     Dates: start: 201812, end: 201901
  4. CONCOR [Concomitant]
     Active Substance: BISOPROLOL FUMARATE
     Dosage: UNK
     Route: 065
     Dates: start: 201902
  5. ASPIRIN CARDIO [Concomitant]
     Active Substance: ASPIRIN
     Dosage: UNK
     Route: 065
     Dates: start: 2016
  6. TRAMAL [Concomitant]
     Active Substance: TRAMADOL
     Dosage: AS NECESSARY
     Route: 065
     Dates: start: 201902
  7. APROVEL [Suspect]
     Active Substance: IRBESARTAN
     Dosage: 150 MG UNK
     Route: 065
     Dates: start: 201812, end: 201902
  8. BELOC ZOK [Concomitant]
     Active Substance: METOPROLOL SUCCINATE
     Dosage: UNK
     Route: 065
     Dates: start: 201812, end: 20190218
  9. LAXOBERON [Concomitant]
     Active Substance: SODIUM PICOSULFATE
     Dosage: AS NECESSARY
     Route: 065
     Dates: start: 201812, end: 201901
  10. TIENAM [Concomitant]
     Active Substance: CILASTATIN SODIUM\IMIPENEM
     Dosage: UNK
     Route: 065
     Dates: start: 201902
  11. QUANTALAN [Concomitant]
     Active Substance: CHOLESTYRAMINE
     Dosage: UNK
     Route: 065
     Dates: start: 201902
  12. TRESIBA [Concomitant]
     Active Substance: INSULIN DEGLUDEC
     Dosage: UNK
     Route: 065
  13. OLMESARTAN [Suspect]
     Active Substance: OLMESARTAN
     Dosage: 40 MG UNK
     Route: 065
     Dates: start: 2011, end: 2017
  14. PLAVIX [Concomitant]
     Active Substance: CLOPIDOGREL BISULFATE
     Route: 065
     Dates: start: 201901, end: 20190220
  15. CLOPIDOGREL [Concomitant]
     Active Substance: CLOPIDOGREL BISULFATE
     Dosage: UNK
     Route: 065
     Dates: start: 20190306
  16. HEPARIN [Concomitant]
     Active Substance: HEPARIN SODIUM
     Dosage: UNK
     Route: 065
     Dates: start: 201812, end: 201902
  17. TOBRADEX [Concomitant]
     Active Substance: DEXAMETHASONE\TOBRAMYCIN
     Dosage: UNK
     Route: 065
     Dates: start: 201812, end: 201901
  18. NEXIUM [Concomitant]
     Active Substance: ESOMEPRAZOLE MAGNESIUM
     Dosage: UNK
     Route: 065
     Dates: start: 201901, end: 20190225
  19. CALCIPARINE [Concomitant]
     Active Substance: HEPARIN CALCIUM
     Dosage: UNK
     Route: 065
     Dates: start: 201902
  20. IMPORTAL [Concomitant]
     Active Substance: LACTITOL
     Dosage: AS NECESSARY
     Route: 065
     Dates: start: 201902
  21. ADALAT [Concomitant]
     Active Substance: NIFEDIPINE
     Dosage: AS NECESSARY
     Route: 065
     Dates: start: 201902
  22. TORASEMIDE [Concomitant]
     Active Substance: TORSEMIDE
     Dosage: UNKU
     Route: 065
     Dates: start: 201901, end: 201902
  23. LISINOPRIL. [Concomitant]
     Active Substance: LISINOPRIL
     Dosage: UNK
     Route: 065
     Dates: start: 201902
  24. AMLODIPINE+OLMESARTAN [Suspect]
     Active Substance: AMLODIPINE\OLMESARTAN
     Dosage: 1 DF UNK
     Route: 065
     Dates: start: 2017, end: 201812
  25. NOVORAPID [Concomitant]
     Active Substance: INSULIN ASPART
     Dosage: UNK
     Route: 065
  26. INDOPHTAL [Concomitant]
     Dosage: UNK
     Route: 065
     Dates: start: 201812, end: 201901
  27. NEPHROTRANS [Concomitant]
     Active Substance: SODIUM BICARBONATE
     Dosage: UNK
     Route: 065
     Dates: start: 201902
  28. VANCOMYCIN [Concomitant]
     Active Substance: VANCOMYCIN
     Dosage: UNK
     Route: 065
     Dates: start: 20181221, end: 201902
  29. INEGY [Suspect]
     Active Substance: EZETIMIBE\SIMVASTATIN
     Dosage: 1 DF UNK
     Route: 065
     Dates: start: 2011, end: 201812
  30. ATORVASTATIN [Suspect]
     Active Substance: ATORVASTATIN
     Dosage: 40 MG UNK
     Route: 065
     Dates: start: 201812, end: 201902
  31. CEFUROXIME. [Suspect]
     Active Substance: CEFUROXIME
     Dosage: UNK
     Route: 065
     Dates: start: 20181221, end: 20181222
  32. ATARAX [Concomitant]
     Active Substance: HYDROXYZINE HYDROCHLORIDE
     Dosage: UNK
     Route: 065
     Dates: start: 201902
  33. PARACETAMOL [Suspect]
     Active Substance: ACETAMINOPHEN
     Dosage: S NECESSARY / DOSE TEXT: AS NECESSARY
     Route: 065
     Dates: start: 201901, end: 201902

REACTIONS (1)
  - Cholestatic liver injury [Recovering/Resolving]

NARRATIVE: CASE EVENT DATE: 20190205
